FAERS Safety Report 12839172 (Version 1)
Quarter: 2016Q4

REPORT INFORMATION
  Report Type: Spontaneous
  Country: FR (occurrence: FR)
  Receive Date: 20161012
  Receipt Date: 20161012
  Transmission Date: 20170207
  Serious: Yes (Disabling)
  Sender: FDA-Public Use
  Company Number: FR-ABBVIE-16P-056-1750802-00

PATIENT
  Sex: Female

DRUGS (1)
  1. DEPAKINE [Suspect]
     Active Substance: VALPROATE SODIUM
     Indication: MATERNAL EXPOSURE TIMING UNSPECIFIED
     Route: 064

REACTIONS (7)
  - Muscular weakness [Not Recovered/Not Resolved]
  - Scoliosis [Not Recovered/Not Resolved]
  - Sciatica [Not Recovered/Not Resolved]
  - Paralysis [Not Recovered/Not Resolved]
  - Pain [Not Recovered/Not Resolved]
  - Foetal exposure during pregnancy [Unknown]
  - Syringomyelia [Not Recovered/Not Resolved]
